FAERS Safety Report 9747580 (Version 2)
Quarter: 2014Q1

REPORT INFORMATION
  Report Type: Spontaneous
  Country: US (occurrence: US)
  Receive Date: 20131212
  Receipt Date: 20140103
  Transmission Date: 20141002
  Serious: No
  Sender: FDA-Public Use
  Company Number: US-JNJFOC-20131201278

PATIENT
  Age: 30 Year
  Sex: Male
  Weight: 136.08 kg

DRUGS (5)
  1. STELARA [Suspect]
     Indication: PSORIASIS
     Route: 058
     Dates: start: 20130812
  2. STELARA [Suspect]
     Indication: PSORIASIS
     Route: 058
     Dates: start: 20130701
  3. STELARA [Suspect]
     Indication: PSORIASIS
     Route: 058
     Dates: start: 20131118
  4. TREXALL [Concomitant]
     Route: 065
  5. JANUVIA [Concomitant]
     Route: 065

REACTIONS (2)
  - Rash generalised [Recovered/Resolved]
  - Blister [Recovered/Resolved]
